FAERS Safety Report 14160315 (Version 2)
Quarter: 2017Q4

REPORT INFORMATION
  Report Type: Report from Study
  Country: None (occurrence: US)
  Receive Date: 20171104
  Receipt Date: 20171220
  Transmission Date: 20180321
  Serious: Yes (Other)
  Sender: FDA-Public Use
  Company Number: US-ABBVIE-17K-163-1909319-00

PATIENT
  Age: 23 Year
  Sex: Female

DRUGS (1)
  1. HUMIRA [Suspect]
     Active Substance: ADALIMUMAB
     Indication: RHEUMATOID ARTHRITIS
     Route: 058
     Dates: start: 201508, end: 2017

REACTIONS (10)
  - Knee operation [Unknown]
  - Arthralgia [Unknown]
  - Arthralgia [Unknown]
  - Nasopharyngitis [Unknown]
  - Pain of skin [Unknown]
  - Skin graft failure [Unknown]
  - Arthralgia [Unknown]
  - Oropharyngeal pain [Unknown]
  - Joint swelling [Unknown]
  - Pain [Unknown]

NARRATIVE: CASE EVENT DATE: 201508
